FAERS Safety Report 4407853-1 (Version None)
Quarter: 2004Q3

REPORT INFORMATION
  Report Type: 
  Country: None (occurrence: None)
  Receive Date: 20040726
  Receipt Date: 20040721
  Transmission Date: 20050211
  Serious: Yes (Hospitalization)
  Sender: FDA-Public Use
  Company Number: FR-GLAXOSMITHKLINE-B0340235A

PATIENT
  Age: 40 Year
  Sex: Female

DRUGS (5)
  1. EPIVIR [Suspect]
     Indication: HIV INFECTION
     Route: 048
     Dates: start: 20040526, end: 20040604
  2. VIDEX [Suspect]
     Indication: HIV INFECTION
     Route: 048
     Dates: start: 20040526, end: 20040604
  3. KALETRA [Suspect]
     Indication: HIV INFECTION
     Route: 048
     Dates: start: 20040526, end: 20040604
  4. WELLVONE [Concomitant]
     Route: 048
  5. MALOCIDE [Concomitant]
     Route: 048

REACTIONS (10)
  - COUGH [None]
  - CYTOLYTIC HEPATITIS [None]
  - EOSINOPHILIA [None]
  - LUNG DISORDER [None]
  - NAUSEA [None]
  - PRURITUS [None]
  - PURPURA [None]
  - PYREXIA [None]
  - RASH MACULO-PAPULAR [None]
  - VOMITING [None]
